FAERS Safety Report 9384925 (Version 1)
Quarter: 2013Q3

REPORT INFORMATION
  Report Type: Spontaneous
  Country: US (occurrence: US)
  Receive Date: 20130705
  Receipt Date: 20130705
  Transmission Date: 20140515
  Serious: No
  Sender: FDA-Public Use
  Company Number: US-GLAXOSMITHKLINE-A0963576A

PATIENT
  Age: 51 Year
  Sex: Female
  Weight: 113.5 kg

DRUGS (21)
  1. BENLYSTA [Suspect]
     Indication: SYSTEMIC LUPUS ERYTHEMATOSUS
     Dosage: 1100MG EVERY 28 DAYS
     Route: 042
     Dates: start: 20110712
  2. METHOTREXATE [Suspect]
     Indication: PRODUCT USED FOR UNKNOWN INDICATION
     Dosage: 15MG UNKNOWN
  3. PLAQUENIL [Concomitant]
     Dosage: 200MG PER DAY
     Route: 048
  4. METFORMIN [Concomitant]
     Dosage: 1000MG PER DAY
  5. NORVASC [Concomitant]
     Dosage: 5MG PER DAY
     Route: 048
  6. DHEA [Concomitant]
     Dosage: 200MG PER DAY
     Route: 048
  7. NEURONTIN [Concomitant]
     Dosage: 900MG PER DAY
     Route: 048
  8. BACLOFEN [Concomitant]
     Dosage: 10MG PER DAY
     Route: 048
  9. ULTRAM [Concomitant]
     Dosage: 50MG PER DAY
     Route: 048
  10. ASPIRIN [Concomitant]
     Dosage: 81MG PER DAY
     Route: 048
  11. TYLENOL [Concomitant]
     Dosage: 500MG PER DAY
  12. FLONASE [Concomitant]
     Route: 045
  13. ZYRTEC [Concomitant]
     Dosage: 10MG PER DAY
     Route: 048
  14. CICLESONIDE [Concomitant]
     Dosage: 80MCG PER DAY
     Route: 055
  15. XOPENEX [Concomitant]
     Route: 055
  16. VITAMIN [Concomitant]
  17. NEXIUM [Concomitant]
     Route: 048
  18. VITAMIN D [Concomitant]
     Dosage: 2000IU PER DAY
  19. VITAMIN D [Concomitant]
  20. FOLIC ACID [Concomitant]
     Route: 048
  21. FOLIC ACID [Concomitant]

REACTIONS (7)
  - Headache [Recovered/Resolved]
  - Balance disorder [Unknown]
  - Muscular weakness [Unknown]
  - Fall [Recovered/Resolved]
  - Contusion [Unknown]
  - Feeling abnormal [Unknown]
  - Drug administration error [Unknown]
